FAERS Safety Report 10119145 (Version 2)
Quarter: 2015Q1

REPORT INFORMATION
  Report Type: Other
  Country: US (occurrence: US)
  Receive Date: 20140426
  Receipt Date: 20150211
  Transmission Date: 20150720
  Serious: Yes (Hospitalization, Other)
  Sender: FDA-Public Use
  Company Number: US-GSKPPD-2014GSK020758

PATIENT
  Age: 56 Year
  Sex: Male
  Weight: 114.4 kg

DRUGS (11)
  1. LOPRESSOR [Concomitant]
     Active Substance: METOPROLOL TARTRATE
  2. COREG [Concomitant]
     Active Substance: CARVEDILOL
  3. APRESOLINE HYDROCHLORIDE [Concomitant]
     Active Substance: HYDRALAZINE HYDROCHLORIDE
  4. AVANDIA [Suspect]
     Active Substance: ROSIGLITAZONE MALEATE
     Indication: DIABETES MELLITUS
     Dosage: DATES OF AVANDIA USE COULD NOT BE CONFIRMED IN RECORDS REVIEWED.
     Route: 048
  5. DIGOXIN. [Concomitant]
     Active Substance: DIGOXIN
  6. MAXZIDE [Concomitant]
     Active Substance: HYDROCHLOROTHIAZIDE\TRIAMTERENE
  7. IMDUR SR [Concomitant]
  8. ECOTRIN [Concomitant]
     Active Substance: ASPIRIN
  9. DIOVAN [Concomitant]
     Active Substance: VALSARTAN
  10. NORVASC [Concomitant]
     Active Substance: AMLODIPINE BESYLATE
  11. LASIX [Concomitant]
     Active Substance: FUROSEMIDE

REACTIONS (1)
  - Coronary artery bypass [Recovered/Resolved]

NARRATIVE: CASE EVENT DATE: 20051101
